FAERS Safety Report 25652549 (Version 2)
Quarter: 2025Q3

REPORT INFORMATION
  Report Type: Spontaneous
  Country: US (occurrence: US)
  Receive Date: 20250807
  Receipt Date: 20250821
  Transmission Date: 20251021
  Serious: Yes (Hospitalization)
  Sender: TEVA
  Company Number: US-TEVA-VS-3358349

PATIENT
  Age: 82 Year
  Sex: Male

DRUGS (1)
  1. DAPTOMYCIN [Suspect]
     Active Substance: DAPTOMYCIN
     Indication: Osteomyelitis
     Route: 042

REACTIONS (4)
  - Pneumonitis [Recovering/Resolving]
  - Eosinophilic pneumonia acute [Recovering/Resolving]
  - Acute respiratory failure [Recovering/Resolving]
  - Respiratory distress [Recovering/Resolving]
